FAERS Safety Report 14525785 (Version 1)
Quarter: 2018Q1

REPORT INFORMATION
  Report Type: Spontaneous
  Country: US (occurrence: US)
  Receive Date: 20180211
  Receipt Date: 20180211
  Transmission Date: 20180509
  Serious: Yes (Disabling)
  Sender: FDA-Public Use
  Company Number: None

PATIENT
  Sex: Male
  Weight: 89.1 kg

DRUGS (6)
  1. 35% HYDROGEN PEROXIDE [Suspect]
     Active Substance: HYDROGEN PEROXIDE
     Indication: DENTAL DISORDER PROPHYLAXIS
     Dosage: DILUTED AND USED TO RINSE MOUTH?
     Dates: start: 20170930, end: 20171001
  2. MAGNESIUM [Concomitant]
     Active Substance: MAGNESIUM
  3. VITAMIN C [Concomitant]
     Active Substance: ASCORBIC ACID
  4. LISINOPRIL. [Concomitant]
     Active Substance: LISINOPRIL
  5. VITAMIN B-COMPLEX [Concomitant]
     Active Substance: DEXPANTHENOL\NIACINAMIDE\PYRIDOXINE HYDROCHLORIDE\RIBOFLAVIN 5^-PHOSPHATE SODIUM\THIAMINE HYDROCHLORIDE
  6. VITAMIN D [Concomitant]
     Active Substance: CHOLECALCIFEROL

REACTIONS (3)
  - Oral discomfort [None]
  - Physical product label issue [None]
  - Drug dispensing error [None]

NARRATIVE: CASE EVENT DATE: 20170930
